FAERS Safety Report 24547938 (Version 1)
Quarter: 2024Q4

REPORT INFORMATION
  Report Type: Spontaneous
  Country: US (occurrence: US)
  Receive Date: 20241025
  Receipt Date: 20241025
  Transmission Date: 20250115
  Serious: No
  Sender: ROCHE
  Company Number: US-ROCHE-10000114486

PATIENT
  Age: 59 Year
  Sex: Female

DRUGS (2)
  1. XOLAIR [Suspect]
     Active Substance: OMALIZUMAB
     Indication: Product used for unknown indication
     Route: 065
  2. DUPIXENT [Suspect]
     Active Substance: DUPILUMAB
     Indication: Dermatitis atopic
     Dosage: STRENGTH 300MG/2ML
     Route: 058
     Dates: start: 20240618

REACTIONS (5)
  - Injection site urticaria [Unknown]
  - Urticaria [Unknown]
  - Swelling [Recovered/Resolved]
  - Contusion [Recovered/Resolved]
  - Breast pain [Recovering/Resolving]
